FAERS Safety Report 9459800 (Version 1)
Quarter: 2013Q3

REPORT INFORMATION
  Report Type: Spontaneous
  Country: US (occurrence: US)
  Receive Date: 20130815
  Receipt Date: 20130815
  Transmission Date: 20140515
  Serious: No
  Sender: FDA-Public Use
  Company Number: US-TEVA-424639USA

PATIENT
  Age: 26 Year
  Sex: Male
  Weight: 81.72 kg

DRUGS (1)
  1. PROAIR HFA [Suspect]

REACTIONS (2)
  - Alcoholism [Unknown]
  - Off label use [Unknown]
